FAERS Safety Report 5369221-8 (Version None)
Quarter: 2007Q2

REPORT INFORMATION
  Report Type: 
  Country: None (occurrence: None)
  Receive Date: 20070625
  Receipt Date: 20070222
  Transmission Date: 20071010
  Serious: No
  Sender: FDA-Public Use
  Company Number: US-ASTRAZENECA-2007UW03438

PATIENT
  Age: 73 Year
  Sex: Female
  Weight: 72.6 kg

DRUGS (4)
  1. CRESTOR [Suspect]
     Route: 048
     Dates: start: 20040101, end: 20070101
  2. MULTI-VITAMIN [Concomitant]
  3. CALCIUM CHLORIDE [Concomitant]
  4. ASCORBIC ACID [Concomitant]

REACTIONS (1)
  - HAIR COLOUR CHANGES [None]
